FAERS Safety Report 21261315 (Version 3)
Quarter: 2022Q4

REPORT INFORMATION
  Report Type: Report from Study
  Country: US (occurrence: US)
  Receive Date: 20220827
  Receipt Date: 20221117
  Transmission Date: 20230112
  Serious: No
  Sender: FDA-Public Use
  Company Number: US-NOVARTISTESTPH-NVSC2022US188341

PATIENT
  Sex: Male

DRUGS (1)
  1. KESIMPTA [Suspect]
     Active Substance: OFATUMUMAB
     Indication: Product used for unknown indication
     Dosage: 20 MG, QMO
     Route: 058
     Dates: start: 20220808

REACTIONS (5)
  - Anxiety [Unknown]
  - Fear of injection [Unknown]
  - Paraesthesia [Unknown]
  - Memory impairment [Not Recovered/Not Resolved]
  - Injection site pain [Unknown]
